FAERS Safety Report 8314793-4 (Version None)
Quarter: 2012Q2

REPORT INFORMATION
  Report Type: 
  Country: None (occurrence: None)
  Receive Date: 20120426
  Receipt Date: 20120425
  Transmission Date: 20120825
  Serious: Yes (Life-Threatening, Hospitalization)
  Sender: FDA-Public Use
  Company Number: PHFR2012GB002560

PATIENT
  Age: 36 Year
  Sex: Male

DRUGS (6)
  1. ORPHENADRINE CITRATE [Concomitant]
     Dosage: 50 MG, UNK
     Route: 048
  2. CLOZARIL [Suspect]
     Indication: PSYCHOTIC DISORDER
     Dosage: 150 MG, UNK
     Route: 048
     Dates: start: 20120228, end: 20120317
  3. LANSOPRAZOLE [Concomitant]
     Dosage: 30 MG, UNK
     Route: 048
  4. DIAZEPAM [Concomitant]
     Dosage: 5 MG, UNK
     Route: 048
  5. SIMVASTATIN [Concomitant]
     Dosage: 20 MG, UNK
     Route: 048
  6. THIAMINE HCL [Concomitant]
     Dosage: 100 MG, UNK
     Route: 048

REACTIONS (2)
  - MYOCARDITIS [None]
  - ENDOCARDITIS [None]
